FAERS Safety Report 8577329-9 (Version None)
Quarter: 2012Q3

REPORT INFORMATION
  Report Type: 
  Country: None (occurrence: None)
  Receive Date: 20120807
  Receipt Date: 20120730
  Transmission Date: 20120928
  Serious: No
  Sender: FDA-Public Use
  Company Number: US-ASTRAZENECA-2012SE53742

PATIENT
  Age: 61 Year
  Sex: Female
  Weight: 62.6 kg

DRUGS (8)
  1. ZOLOFT [Concomitant]
     Indication: DEPRESSION
  2. SEROQUEL XR [Suspect]
     Indication: BIPOLAR DISORDER
     Route: 048
     Dates: start: 20090101
  3. ALENDRONATE SODIUM [Concomitant]
     Indication: OSTEOPOROSIS
  4. PROTONIX [Concomitant]
     Indication: GASTRIC DISORDER
  5. COREG [Concomitant]
  6. ZOCOR [Concomitant]
  7. AMLODIPINE [Concomitant]
     Indication: HYPERTENSION
  8. XANAX [Concomitant]
     Indication: ANXIETY

REACTIONS (3)
  - DRUG DOSE OMISSION [None]
  - INSOMNIA [None]
  - OSTEOPOROSIS [None]
